FAERS Safety Report 7986988-0 (Version None)
Quarter: 2011Q4

REPORT INFORMATION
  Report Type: 
  Country: None (occurrence: None)
  Receive Date: 20111216
  Receipt Date: 20111109
  Transmission Date: 20120403
  Serious: No
  Sender: FDA-Public Use
  Company Number: PR-BAYER-2011-109857

PATIENT
  Sex: Male

DRUGS (2)
  1. AVELOX [Suspect]
     Indication: SINUSITIS
     Dosage: 400 MG
     Route: 048
  2. AVELOX [Suspect]
     Indication: BRONCHITIS

REACTIONS (2)
  - BLISTER [None]
  - COUGH [None]
